FAERS Safety Report 24892645 (Version 1)
Quarter: 2025Q1

REPORT INFORMATION
  Report Type: Spontaneous
  Country: DK (occurrence: DK)
  Receive Date: 20250128
  Receipt Date: 20250128
  Transmission Date: 20250409
  Serious: Yes (Disabling)
  Sender: NOVO NORDISK
  Company Number: None

PATIENT
  Age: 8 Decade
  Sex: Male

DRUGS (3)
  1. OZEMPIC [Suspect]
     Active Substance: SEMAGLUTIDE
     Dosage: 1.5 MG, QW
     Route: 058
     Dates: start: 2022, end: 2022
  2. OZEMPIC [Suspect]
     Active Substance: SEMAGLUTIDE
     Indication: Overweight
     Dosage: 1 MG, QW
     Route: 058
     Dates: start: 2022, end: 2022
  3. INNOVAIR [Concomitant]
     Active Substance: BECLOMETHASONE DIPROPIONATE\FORMOTEROL
     Indication: Asthma
     Dates: start: 20201005

REACTIONS (5)
  - Hiccups [Recovered/Resolved]
  - Condition aggravated [Recovered/Resolved]
  - Insomnia [Unknown]
  - Product use issue [Recovered/Resolved]
  - Product use in unapproved indication [Recovered/Resolved]

NARRATIVE: CASE EVENT DATE: 20220101
